FAERS Safety Report 9851317 (Version 1)
Quarter: 2014Q1

REPORT INFORMATION
  Report Type: Report from Study
  Country: US (occurrence: US)
  Receive Date: 20140129
  Receipt Date: 20140129
  Transmission Date: 20141002
  Serious: Yes (Death)
  Sender: FDA-Public Use
  Company Number: US-ROCHE-1316865

PATIENT
  Sex: Female

DRUGS (8)
  1. AVASTIN [Suspect]
     Indication: LUNG NEOPLASM MALIGNANT
     Route: 042
     Dates: start: 20100909
  2. KYTRIL [Suspect]
     Indication: NAUSEA
     Route: 042
  3. KYTRIL [Suspect]
     Indication: LUNG NEOPLASM MALIGNANT
  4. DECADRON [Concomitant]
     Route: 042
  5. DECADRON [Concomitant]
     Route: 042
  6. DECADRON [Concomitant]
     Route: 042
  7. ALIMTA [Concomitant]
     Route: 042
  8. GEMCITABINE [Concomitant]
     Route: 042

REACTIONS (1)
  - Lung cancer metastatic [Fatal]
